FAERS Safety Report 6298810-1 (Version None)
Quarter: 2009Q3

REPORT INFORMATION
  Report Type: 
  Country: None (occurrence: None)
  Receive Date: 20090806
  Receipt Date: 20090724
  Transmission Date: 20100115
  Serious: Yes (Hospitalization, Other)
  Sender: FDA-Public Use
  Company Number: US-PFIZER INC-2009228837

PATIENT
  Sex: Female
  Weight: 102.49 kg

DRUGS (21)
  1. REVATIO [Suspect]
     Indication: PULMONARY HYPERTENSION
     Dosage: 20 MG, 3X/DAY
     Dates: start: 20070521
  2. WARFARIN SODIUM [Suspect]
     Dosage: UNK
     Dates: end: 20090501
  3. SERTRALINE [Concomitant]
  4. ATENOLOL [Concomitant]
     Dosage: UNK
  5. INSULIN [Concomitant]
     Dosage: UNK
  6. ALLOPURINOL [Concomitant]
     Dosage: UNK
  7. REGLAN [Concomitant]
     Dosage: UNK
  8. DARVON [Concomitant]
     Dosage: UNK
  9. PRILOSEC [Concomitant]
     Dosage: UNK
  10. FISH OIL [Concomitant]
     Dosage: UNK
  11. ACETYLSALICYLIC ACID [Concomitant]
     Dosage: UNK
  12. FERROUS SULFATE [Concomitant]
     Dosage: UNK
  13. CITRUCEL [Concomitant]
     Dosage: UNK
  14. MIRALAX [Concomitant]
     Dosage: UNK
  15. FLUOXETINE [Concomitant]
     Dosage: UNK
  16. BUMEX [Concomitant]
     Dosage: UNK
  17. ZAROXOLYN [Concomitant]
     Dosage: UNK
  18. POTASSIUM [Concomitant]
     Dosage: UNK
  19. OXYGEN [Concomitant]
     Dosage: UNK
  20. SIMVASTATIN [Concomitant]
     Dosage: UNK
  21. NEURONTIN [Concomitant]

REACTIONS (6)
  - ANAEMIA [None]
  - ANXIETY [None]
  - ENDOMETRIAL HYPERTROPHY [None]
  - INTERTRIGO CANDIDA [None]
  - MENSTRUAL DISORDER [None]
  - POSTMENOPAUSAL HAEMORRHAGE [None]
